FAERS Safety Report 7288365-7 (Version None)
Quarter: 2011Q1

REPORT INFORMATION
  Report Type: 
  Country: None (occurrence: None)
  Receive Date: 20110211
  Receipt Date: 20110207
  Transmission Date: 20110831
  Serious: Yes (Other)
  Sender: FDA-Public Use
  Company Number: US-SANOFI-AVENTIS-2011SA008274

PATIENT
  Sex: Female

DRUGS (3)
  1. GLIMEPIRIDE [Suspect]
     Route: 065
  2. ACTOS [Suspect]
  3. INSULIN [Suspect]

REACTIONS (3)
  - TRANSIENT ISCHAEMIC ATTACK [None]
  - DIABETES MELLITUS INADEQUATE CONTROL [None]
  - THERAPEUTIC RESPONSE DECREASED [None]
